FAERS Safety Report 7674796-X (Version None)
Quarter: 2011Q3

REPORT INFORMATION
  Report Type: 
  Country: None (occurrence: None)
  Receive Date: 20110810
  Receipt Date: 20110802
  Transmission Date: 20111222
  Serious: Yes (Hospitalization)
  Sender: FDA-Public Use
  Company Number: FR-GLAXOSMITHKLINE-B0738296A

PATIENT
  Sex: Male

DRUGS (1)
  1. SORIATANE [Suspect]
     Indication: PSORIASIS
     Dosage: 20MG PER DAY
     Route: 048
     Dates: start: 20110420, end: 20110601

REACTIONS (2)
  - CYTOLYTIC HEPATITIS [None]
  - JAUNDICE [None]
